FAERS Safety Report 8789883 (Version 3)
Quarter: 2012Q4

REPORT INFORMATION
  Report Type: 
  Country: BR (occurrence: BR)
  Receive Date: 20120917
  Receipt Date: 20121221
  Transmission Date: 20130627
  Serious: Yes (Death, Hospitalization, Other)
  Sender: FDA-Public Use
  Company Number: BR-PFIZER INC-2012215071

PATIENT
  Age: 59 Year
  Sex: Male
  Weight: 86 kg

DRUGS (7)
  1. SUTENT [Suspect]
     Indication: RENAL CELL CARCINOMA
     Dosage: 50 mg, 1x/day (cycle 4 to 2)
     Route: 048
     Dates: start: 20120811
  2. SUTENT [Suspect]
     Indication: RENAL CANCER
  3. LOSARTAN POTASSIUM [Concomitant]
     Dosage: 50 mg, 2x/day
  4. HYDROCHLOROTHIAZIDE [Concomitant]
     Dosage: 25 mg, 1x/day
  5. DOXAZOSIN MESILATE [Concomitant]
     Dosage: 10 mg, 1x/day
  6. TEGRETOL [Concomitant]
     Dosage: 200 mg, every eight hours
  7. PURAN T4 [Concomitant]
     Dosage: 160 mg, 1x/day

REACTIONS (21)
  - Death [Fatal]
  - Haematemesis [Unknown]
  - Respiratory disorder [Unknown]
  - Disease progression [Unknown]
  - Renal cell carcinoma [Unknown]
  - Pain in extremity [Unknown]
  - Erythema [Unknown]
  - Pain [Not Recovered/Not Resolved]
  - Gait disturbance [Not Recovered/Not Resolved]
  - Muscular weakness [Not Recovered/Not Resolved]
  - Neuropathy peripheral [Not Recovered/Not Resolved]
  - Dysstasia [Not Recovered/Not Resolved]
  - Dysphonia [Unknown]
  - Cough [Unknown]
  - Fatigue [Unknown]
  - Nasopharyngitis [Unknown]
  - Blister [Unknown]
  - Skin exfoliation [Unknown]
  - Walking disability [Unknown]
  - Skin atrophy [Unknown]
  - Dyspnoea [Unknown]
